FAERS Safety Report 15204861 (Version 4)
Quarter: 2025Q4

REPORT INFORMATION
  Report Type: Report from Study
  Country: EU (occurrence: EU)
  Receive Date: 20180726
  Receipt Date: 20251212
  Transmission Date: 20260118
  Serious: Yes (Hospitalization, Other)
  Sender: TAKEDA
  Company Number: EU-SHIRE-DE201828437

PATIENT
  Age: 49 Year
  Sex: Male

DRUGS (3)
  1. MESALAMINE [Interacting]
     Active Substance: MESALAMINE
     Indication: Product used for unknown indication
     Dosage: 400 MILLIGRAM
  2. OMEPRAZOLE [Interacting]
     Active Substance: OMEPRAZOLE
     Indication: Colitis ulcerative
     Dosage: 20 MILLIGRAM
  3. CORTISONE [Interacting]
     Active Substance: CORTISONE
     Indication: Product used for unknown indication
     Dosage: 10 MILLIGRAM

REACTIONS (3)
  - Hepatotoxicity [Recovering/Resolving]
  - Transaminases increased [Unknown]
  - Drug interaction [Recovering/Resolving]
